FAERS Safety Report 4699240-6 (Version None)
Quarter: 2005Q2

REPORT INFORMATION
  Report Type: 
  Country: None (occurrence: None)
  Receive Date: 20050624
  Receipt Date: 20050511
  Transmission Date: 20051028
  Serious: Yes (Other)
  Sender: FDA-Public Use
  Company Number: DE-MERCK-0505DEU00069

PATIENT
  Age: 4 Year
  Sex: Male
  Weight: 17 kg

DRUGS (2)
  1. SINGULAIR [Suspect]
     Indication: ASTHMA
     Route: 048
     Dates: start: 20031111
  2. PRIMIDONE [Concomitant]
     Route: 048
     Dates: start: 20020210

REACTIONS (2)
  - CONDITION AGGRAVATED [None]
  - EPILEPSY [None]
